FAERS Safety Report 5019455-7 (Version None)
Quarter: 2006Q2

REPORT INFORMATION
  Report Type: 
  Country: None (occurrence: None)
  Receive Date: 20060606
  Receipt Date: 20060525
  Transmission Date: 20061013
  Serious: Yes (Death)
  Sender: FDA-Public Use
  Company Number: PHEH2006US07181

PATIENT
  Age: 93 Year
  Sex: Female

DRUGS (1)
  1. FORADIL [Suspect]
     Dosage: 12 MCG

REACTIONS (1)
  - DEATH [None]
